FAERS Safety Report 6892715-0 (Version None)
Quarter: 2010Q3

REPORT INFORMATION
  Report Type: 
  Country: None (occurrence: None)
  Receive Date: 20100731
  Receipt Date: 20080828
  Transmission Date: 20110219
  Serious: No
  Sender: FDA-Public Use
  Company Number: US-PFIZER INC-2008072373

PATIENT
  Sex: Male
  Weight: 83 kg

DRUGS (2)
  1. GABAPENTIN [Suspect]
     Indication: RADICULOPATHY
     Dates: start: 20080116, end: 20080301
  2. DRUG, UNSPECIFIED [Concomitant]

REACTIONS (1)
  - RASH MACULO-PAPULAR [None]
